FAERS Safety Report 6034078-9 (Version None)
Quarter: 2009Q1

REPORT INFORMATION
  Report Type: 
  Country: None (occurrence: None)
  Receive Date: 20090108
  Receipt Date: 20090108
  Transmission Date: 20090719
  Serious: No
  Sender: FDA-Public Use
  Company Number: None

PATIENT
  Sex: Female
  Weight: 48.64 kg

DRUGS (4)
  1. NECON [Suspect]
     Dosage: 0.5/35 1 TAB QD ORAL
     Route: 048
     Dates: start: 20080409, end: 20090107
  2. CALCIUM+D [Concomitant]
  3. ERGOCALCIFEROL [Concomitant]
  4. FERROUS GLUCONATE [Concomitant]

REACTIONS (1)
  - HEADACHE [None]
